FAERS Safety Report 22971706 (Version 3)
Quarter: 2024Q1

REPORT INFORMATION
  Report Type: Spontaneous
  Country: CA (occurrence: CA)
  Receive Date: 20230922
  Receipt Date: 20240205
  Transmission Date: 20240410
  Serious: No
  Sender: FDA-Public Use
  Company Number: CA-PFIZER INC-202300291226

PATIENT
  Age: 20 Year
  Sex: Female

DRUGS (5)
  1. GENOTROPIN [Suspect]
     Active Substance: SOMATROPIN
     Dosage: 400 UG,(GOQUICK 5.3MG PEN) 7 TIMES A WEEK
     Route: 058
     Dates: start: 20220308
  2. GENOTROPIN [Suspect]
     Active Substance: SOMATROPIN
     Dosage: 400 UG,(GOQUICK 5.3MG PEN) 7 TIMES A WEEK
     Route: 058
     Dates: start: 20230831
  3. CORTEF [Concomitant]
     Active Substance: HYDROCORTISONE
     Dosage: UNK
  4. SYNTHROID [Concomitant]
     Active Substance: LEVOTHYROXINE SODIUM
     Dosage: 75 UG
  5. FLUOXETINE [Concomitant]
     Active Substance: FLUOXETINE HYDROCHLORIDE
     Indication: Anxiety
     Dosage: 10 MG, DAILY

REACTIONS (1)
  - Device difficult to use [Unknown]

NARRATIVE: CASE EVENT DATE: 20230831
